FAERS Safety Report 11388586 (Version 14)
Quarter: 2020Q2

REPORT INFORMATION
  Report Type: Spontaneous
  Country: CA (occurrence: CA)
  Receive Date: 20150817
  Receipt Date: 20200420
  Transmission Date: 20200713
  Serious: Yes (Hospitalization, Other)
  Sender: FDA-Public Use
  Company Number: CA-MERCK-1507CAN010742

PATIENT
  Age: 47 Year
  Sex: Female
  Weight: 87 kg

DRUGS (8)
  1. KEYTRUDA [Suspect]
     Active Substance: PEMBROLIZUMAB
     Indication: METASTATIC MALIGNANT MELANOMA
     Dosage: 175 MG, Q3W
     Route: 042
     Dates: start: 20150630
  2. KEYTRUDA [Suspect]
     Active Substance: PEMBROLIZUMAB
     Dosage: 175 MG, Q3W
     Route: 042
     Dates: start: 20150630
  3. SYNTHROID [Concomitant]
     Active Substance: LEVOTHYROXINE SODIUM
     Indication: HYPOTHYROIDISM
     Dosage: UNK
     Route: 065
  4. SENOKOT [Concomitant]
     Active Substance: SENNOSIDES
     Dosage: 6 DF, QD
     Route: 065
  5. GABAPENTIN. [Suspect]
     Active Substance: GABAPENTIN
     Indication: PRODUCT USED FOR UNKNOWN INDICATION
     Dosage: UNK
     Route: 065
  6. NAPROXEN. [Concomitant]
     Active Substance: NAPROXEN
     Dosage: UNK
     Route: 065
  7. METHADONE HYDROCHLORIDE. [Suspect]
     Active Substance: METHADONE HYDROCHLORIDE
     Indication: PRODUCT USED FOR UNKNOWN INDICATION
     Dosage: UNK
     Route: 065
  8. ONDANSETRON HYDROCHLORIDE. [Concomitant]
     Active Substance: ONDANSETRON HYDROCHLORIDE
     Dosage: UNK
     Route: 065

REACTIONS (37)
  - Vomiting [Recovered/Resolved]
  - Nausea [Recovering/Resolving]
  - Iritis [Unknown]
  - Chest pain [Unknown]
  - Nausea [Recovering/Resolving]
  - Nausea [Unknown]
  - Body temperature increased [Recovered/Resolved]
  - Back pain [Unknown]
  - Nasal congestion [Unknown]
  - Gastrointestinal motility disorder [Recovering/Resolving]
  - Flushing [Recovering/Resolving]
  - Menopausal symptoms [Recovered/Resolved]
  - Vomiting [Recovering/Resolving]
  - Pain [Recovered/Resolved]
  - Procedural pain [Unknown]
  - Thyroxine increased [Recovering/Resolving]
  - Vomiting [Recovering/Resolving]
  - Diarrhoea [Unknown]
  - Radiation associated pain [Unknown]
  - Diarrhoea [Recovering/Resolving]
  - Constipation [Recovering/Resolving]
  - Anxiety [Recovered/Resolved]
  - Fatigue [Recovered/Resolved]
  - Pruritus [Recovering/Resolving]
  - Blood glucose increased [Unknown]
  - Nausea [Unknown]
  - Abdominal pain [Recovering/Resolving]
  - Pulmonary oedema [Unknown]
  - Blood thyroid stimulating hormone increased [Recovering/Resolving]
  - Vomiting [Unknown]
  - Diarrhoea [Recovering/Resolving]
  - Hypopnoea [Unknown]
  - Dyspnoea exertional [Unknown]
  - Pneumothorax [Unknown]
  - Pleural effusion [Not Recovered/Not Resolved]
  - Headache [Unknown]
  - Diarrhoea [Recovered/Resolved]

NARRATIVE: CASE EVENT DATE: 2015
